FAERS Safety Report 9928631 (Version 1)
Quarter: 2014Q1

REPORT INFORMATION
  Report Type: Spontaneous
  Country: US (occurrence: US)
  Receive Date: 20140227
  Receipt Date: 20140227
  Transmission Date: 20141002
  Serious: Yes (Other)
  Sender: FDA-Public Use
  Company Number: US-PFIZER INC-2014054295

PATIENT
  Age: 58 Year
  Sex: Female
  Weight: 68.03 kg

DRUGS (2)
  1. CELEBREX [Suspect]
     Indication: ARTHRITIS
     Dosage: 200 MG, 1X/DAY
     Dates: end: 2014
  2. CELEBREX [Suspect]
     Indication: PAIN

REACTIONS (4)
  - Rheumatoid arthritis [Unknown]
  - Ankle fracture [Unknown]
  - Drug ineffective [Unknown]
  - Joint injury [Unknown]
